FAERS Safety Report 21098135 (Version 5)
Quarter: 2024Q1

REPORT INFORMATION
  Report Type: Report from Study
  Country: ZA (occurrence: ZA)
  Receive Date: 20220719
  Receipt Date: 20240116
  Transmission Date: 20240410
  Serious: Yes (Hospitalization, Other)
  Sender: FDA-Public Use
  Company Number: ZA-TAKEDA-2022TUS033511

PATIENT
  Age: 40 Year
  Sex: Female

DRUGS (1)
  1. VEDOLIZUMAB [Suspect]
     Active Substance: VEDOLIZUMAB
     Indication: Crohn^s disease
     Dosage: 300 MILLIGRAM
     Route: 042
     Dates: start: 20220117

REACTIONS (6)
  - Encephalitis [Recovered/Resolved]
  - COVID-19 [Recovered/Resolved]
  - Herpes zoster [Recovered/Resolved]
  - Malaise [Unknown]
  - Back disorder [Not Recovered/Not Resolved]
  - Inappropriate schedule of product administration [Recovered/Resolved]
